FAERS Safety Report 10511152 (Version 1)
Quarter: 2014Q4

REPORT INFORMATION
  Report Type: Spontaneous
  Country: IN (occurrence: IN)
  Receive Date: 20141010
  Receipt Date: 20141010
  Transmission Date: 20150528
  Serious: Yes (Hospitalization)
  Sender: FDA-Public Use
  Company Number: IN-MYLANLABS-2014M1006593

PATIENT

DRUGS (4)
  1. SERTRALINE [Suspect]
     Active Substance: SERTRALINE HYDROCHLORIDE
     Indication: OBSESSIVE-COMPULSIVE DISORDER
     Dosage: 25 MG/DAY
     Route: 065
  2. SERTRALINE [Suspect]
     Active Substance: SERTRALINE HYDROCHLORIDE
     Dosage: HIKED TO 150 MG/DAY
     Route: 065
  3. LITHIUM [Suspect]
     Active Substance: LITHIUM CARBONATE
     Indication: OFF LABEL USE
  4. LITHIUM [Suspect]
     Active Substance: LITHIUM CARBONATE
     Indication: OBSESSIVE-COMPULSIVE DISORDER
     Dosage: 900 MG/DAY
     Route: 065

REACTIONS (3)
  - Condition aggravated [Recovered/Resolved]
  - Headache [Unknown]
  - Obsessive-compulsive disorder [Recovered/Resolved]
